FAERS Safety Report 13780504 (Version 1)
Quarter: 2017Q3

REPORT INFORMATION
  Report Type: Spontaneous
  Country: JP (occurrence: JP)
  Receive Date: 20170724
  Receipt Date: 20170724
  Transmission Date: 20171127
  Serious: Yes (Hospitalization, Other)
  Sender: FDA-Public Use
  Company Number: JP-009507513-1707JPN007710

PATIENT
  Age: 29 Year
  Sex: Female

DRUGS (2)
  1. GONADOTROPIN, CHORIONIC [Suspect]
     Active Substance: CHORIOGONADOTROPIN ALFA
     Indication: OVULATION INDUCTION
     Dosage: INJECTED WITH 5000 IU OF HCG, UNK
  2. MENOTROPINS [Suspect]
     Active Substance: MENOTROPINS
     Dosage: A TOTAL DOSE OF 675 IU , UNK

REACTIONS (2)
  - Ectopic pregnancy [Recovered/Resolved]
  - Maternal exposure during pregnancy [Recovered/Resolved]
